FAERS Safety Report 7398964-X (Version None)
Quarter: 2011Q1

REPORT INFORMATION
  Report Type: 
  Country: None (occurrence: None)
  Receive Date: 20110301
  Receipt Date: 20100817
  Transmission Date: 20110831
  Serious: Yes (Other)
  Sender: FDA-Public Use
  Company Number: US-JNJFOC-20100607934

PATIENT
  Age: 6 Year
  Sex: Male
  Weight: 22.6799 kg

DRUGS (1)
  1. CHILDREN'S MOTRIN [Suspect]
     Indication: INFLUENZA
     Dosage: 100 MG, ORAL
     Route: 048
     Dates: start: 20091001, end: 20100301

REACTIONS (3)
  - SWOLLEN TONGUE [None]
  - PRODUCT QUALITY ISSUE [None]
  - SWELLING FACE [None]
